FAERS Safety Report 10022656 (Version 1)
Quarter: 2014Q1

REPORT INFORMATION
  Report Type: Spontaneous
  Country: US (occurrence: US)
  Receive Date: 20140319
  Receipt Date: 20140319
  Transmission Date: 20141002
  Serious: Yes (Hospitalization)
  Sender: FDA-Public Use
  Company Number: US-ACTELION-A-NJ2014-96081

PATIENT
  Age: 52 Year
  Sex: Female

DRUGS (1)
  1. VELETRI [Suspect]
     Indication: PORTOPULMONARY HYPERTENSION
     Dosage: 22 NG/KG, PER MIN
     Route: 042
     Dates: start: 20130724

REACTIONS (1)
  - Cardiac valve vegetation [Recovering/Resolving]
